FAERS Safety Report 16274451 (Version 2)
Quarter: 2025Q3

REPORT INFORMATION
  Report Type: Spontaneous
  Country: US (occurrence: US)
  Receive Date: 20190504
  Receipt Date: 20250722
  Transmission Date: 20251021
  Serious: Yes (Life-Threatening, Hospitalization, Other)
  Sender: AUROBINDO
  Company Number: US-AUROBINDO-AUR-APL-2019-022510

PATIENT
  Age: 29 Year
  Sex: Female

DRUGS (3)
  1. SUMATRIPTAN [Suspect]
     Active Substance: SUMATRIPTAN
     Indication: Migraine
     Route: 058
  2. LEVETIRACETAM [Concomitant]
     Active Substance: LEVETIRACETAM
     Indication: Seizure prophylaxis
     Route: 065
  3. NIMODIPINE [Concomitant]
     Active Substance: NIMODIPINE
     Indication: Prophylaxis
     Route: 065

REACTIONS (12)
  - Subarachnoid haemorrhage [Recovered/Resolved]
  - Hemianopia homonymous [Recovered/Resolved]
  - Cerebral haemorrhage [Recovered/Resolved]
  - Reversible cerebral vasoconstriction syndrome [Recovered/Resolved]
  - Brain oedema [Recovered/Resolved]
  - Posterior reversible encephalopathy syndrome [Recovered/Resolved]
  - Intracranial pressure increased [Recovered/Resolved]
  - Hydrocephalus [Recovered/Resolved]
  - Altered state of consciousness [Recovered/Resolved]
  - Blood pressure increased [Recovered/Resolved]
  - Psychomotor skills impaired [Not Recovered/Not Resolved]
  - Memory impairment [Not Recovered/Not Resolved]
